FAERS Safety Report 7585367-8 (Version None)
Quarter: 2011Q2

REPORT INFORMATION
  Report Type: 
  Country: None (occurrence: None)
  Receive Date: 20110628
  Receipt Date: 20110628
  Transmission Date: 20111010
  Serious: Yes (Hospitalization)
  Sender: FDA-Public Use
  Company Number: None

PATIENT
  Sex: Female
  Weight: 59.9 kg

DRUGS (2)
  1. VALPROIC ACID [Suspect]
     Indication: NEOPLASM
     Dosage: 250MG TID PO
     Route: 048
     Dates: start: 20110615, end: 20110621
  2. VALPROIC ACID [Suspect]
     Indication: NEOPLASM
     Dosage: 500MG TID PO
     Route: 048
     Dates: start: 20110621, end: 20110624

REACTIONS (1)
  - PERICARDIAL EFFUSION [None]
